FAERS Safety Report 8588845-8 (Version None)
Quarter: 2012Q3

REPORT INFORMATION
  Report Type: 
  Country: None (occurrence: None)
  Receive Date: 20120803
  Receipt Date: 20120803
  Transmission Date: 20120928
  Serious: Yes (Life-Threatening, Other)
  Sender: FDA-Public Use
  Company Number: None

PATIENT

DRUGS (1)
  1. QUETIAPINE [Suspect]

REACTIONS (11)
  - INSOMNIA [None]
  - ANXIETY [None]
  - MOOD ALTERED [None]
  - DRUG INEFFECTIVE [None]
  - CONDITION AGGRAVATED [None]
  - THINKING ABNORMAL [None]
  - HOMICIDAL IDEATION [None]
  - PRODUCT SUBSTITUTION ISSUE [None]
  - SUICIDAL IDEATION [None]
  - ANGER [None]
  - LEGAL PROBLEM [None]
